FAERS Safety Report 7902893-X (Version None)
Quarter: 2011Q4

REPORT INFORMATION
  Report Type: 
  Country: None (occurrence: None)
  Receive Date: 20111107
  Receipt Date: 20111027
  Transmission Date: 20120403
  Serious: Yes (Disabling)
  Sender: FDA-Public Use
  Company Number: 2011SP050904

PATIENT
  Age: 51 Year
  Sex: Female
  Weight: 59 kg

DRUGS (3)
  1. REMERON [Suspect]
     Indication: PRODUCT USED FOR UNKNOWN INDICATION
  2. VITAMIN D [Concomitant]
  3. IRON [Concomitant]

REACTIONS (7)
  - HEADACHE [None]
  - INSOMNIA [None]
  - TREMOR [None]
  - PYREXIA [None]
  - NAUSEA [None]
  - DRUG WITHDRAWAL SYNDROME [None]
  - COGNITIVE DISORDER [None]
